FAERS Safety Report 17185083 (Version 1)
Quarter: 2019Q4

REPORT INFORMATION
  Report Type: Spontaneous
  Country: US (occurrence: US)
  Receive Date: 20191128
  Receipt Date: 20191128
  Transmission Date: 20200122
  Serious: Yes (Death, Hospitalization)
  Sender: FDA-Public Use
  Company Number: None

PATIENT
  Sex: Male
  Weight: 91.4 kg

DRUGS (2)
  1. TEMOZOLOMIDE. [Suspect]
     Active Substance: TEMOZOLOMIDE
     Dates: end: 20191113
  2. XELODA [Suspect]
     Active Substance: CAPECITABINE
     Dates: end: 20191113

REACTIONS (29)
  - Hypotension [None]
  - Hypoalbuminaemia [None]
  - Febrile neutropenia [None]
  - Hypovolaemia [None]
  - Disease progression [None]
  - Ascites [None]
  - Aspiration [None]
  - Dry skin [None]
  - Pneumatosis [None]
  - Metabolic encephalopathy [None]
  - Nausea [None]
  - Vomiting [None]
  - Metabolic acidosis [None]
  - Haemodynamic instability [None]
  - General physical health deterioration [None]
  - Abdominal distension [None]
  - Oedema peripheral [None]
  - Pancytopenia [None]
  - Sepsis [None]
  - Diarrhoea [None]
  - Tachycardia [None]
  - Breath sounds abnormal [None]
  - Incisional hernia [None]
  - Respiratory failure [None]
  - Toxicity to various agents [None]
  - Mucosal dryness [None]
  - Acute kidney injury [None]
  - Septic shock [None]
  - Intestinal ischaemia [None]

NARRATIVE: CASE EVENT DATE: 20191121
